FAERS Safety Report 11198326 (Version 1)
Quarter: 2015Q2

REPORT INFORMATION
  Report Type: Spontaneous
  Country: US (occurrence: None)
  Receive Date: 20150615
  Receipt Date: 20150615
  Transmission Date: 20150821
  Serious: No
  Sender: FDA-Public Use
  Company Number: None

PATIENT
  Age: 21 Year

DRUGS (2)
  1. CEFTIN [Suspect]
     Active Substance: CEFUROXIME AXETIL
     Indication: STAPHYLOCOCCAL INFECTION
     Route: 048
  2. CEFTIN [Suspect]
     Active Substance: CEFUROXIME AXETIL
     Indication: LYME DISEASE
     Route: 048

REACTIONS (5)
  - Dizziness [None]
  - Somnolence [None]
  - Sudden onset of sleep [None]
  - Nausea [None]
  - Impaired driving ability [None]
